FAERS Safety Report 6303146-6 (Version None)
Quarter: 2009Q3

REPORT INFORMATION
  Report Type: 
  Country: None (occurrence: None)
  Receive Date: 20090810
  Receipt Date: 20081230
  Transmission Date: 20100115
  Serious: No
  Sender: FDA-Public Use
  Company Number: A0762072A

PATIENT
  Age: 20 Year
  Sex: Male

DRUGS (2)
  1. PAXIL CR [Suspect]
     Dosage: 37.5MG TWICE PER DAY
     Route: 048
     Dates: start: 20080201, end: 20081216
  2. NO CONCURRENT MEDICATION [Concomitant]

REACTIONS (3)
  - PARAESTHESIA [None]
  - SERUM SEROTONIN DECREASED [None]
  - WITHDRAWAL SYNDROME [None]
